FAERS Safety Report 5582014-1 (Version None)
Quarter: 2008Q1

REPORT INFORMATION
  Report Type: 
  Country: None (occurrence: None)
  Receive Date: 20080104
  Receipt Date: 20071226
  Transmission Date: 20080703
  Serious: Yes (Hospitalization)
  Sender: FDA-Public Use
  Company Number: JP-SANOFI-SYNTHELABO-A01200713743

PATIENT
  Sex: Male
  Weight: 50.8 kg

DRUGS (9)
  1. RHEUMATREX [Suspect]
     Indication: RHEUMATOID ARTHRITIS
     Route: 048
     Dates: start: 20031101
  2. REMICADE [Suspect]
     Indication: RHEUMATOID ARTHRITIS
     Dosage: 3 MG
     Route: 048
     Dates: start: 20041101, end: 20071004
  3. PROGRAF [Suspect]
     Indication: RHEUMATOID ARTHRITIS
     Dosage: 1 MG
     Route: 048
     Dates: start: 20070809
  4. MYSLEE [Suspect]
     Indication: INSOMNIA
     Dosage: 10 MG
     Route: 048
     Dates: start: 20020101
  5. MOBIC [Concomitant]
     Dosage: 10 MG
     Route: 048
     Dates: start: 20030101
  6. TAKEPRON [Concomitant]
     Dosage: 30 MG
     Route: 048
     Dates: start: 20030101
  7. PREDONINE [Suspect]
     Indication: RHEUMATOID ARTHRITIS
     Dosage: 15 MG
     Route: 048
     Dates: start: 20020601, end: 20021201
  8. PREDONINE [Suspect]
     Dosage: 5 MG
     Route: 048
     Dates: start: 20020201, end: 20040926
  9. PREDONINE [Suspect]
     Dosage: 4 MG
     Route: 048
     Dates: start: 20040927

REACTIONS (2)
  - PYREXIA [None]
  - TUBERCULOUS PLEURISY [None]
